FAERS Safety Report 11480142 (Version 2)
Quarter: 2015Q3

REPORT INFORMATION
  Report Type: Spontaneous
  Country: US (occurrence: US)
  Receive Date: 20150909
  Receipt Date: 20150923
  Transmission Date: 20151125
  Serious: Yes (Other)
  Sender: FDA-Public Use
  Company Number: US-B.I. PHARMACEUTICALS,INC./RIDGEFIELD-2015-BI-48763BP

PATIENT
  Age: 24 Year
  Sex: Female

DRUGS (2)
  1. GLYXAMBI [Suspect]
     Active Substance: EMPAGLIFLOZIN\LINAGLIPTIN
     Indication: TYPE 1 DIABETES MELLITUS
     Route: 048
  2. INSULIN [Concomitant]
     Active Substance: INSULIN NOS
     Indication: PRODUCT USED FOR UNKNOWN INDICATION
     Dosage: BASAL
     Route: 065

REACTIONS (4)
  - Diabetic ketoacidosis [Recovered/Resolved]
  - Vomiting [Unknown]
  - Off label use [Unknown]
  - Abdominal discomfort [Recovered/Resolved]
